FAERS Safety Report 8067814-0 (Version None)
Quarter: 2012Q1

REPORT INFORMATION
  Report Type: 
  Country: None (occurrence: None)
  Receive Date: 20120124
  Receipt Date: 20120110
  Transmission Date: 20120608
  Serious: Yes (Other)
  Sender: FDA-Public Use
  Company Number: US-WATSON-2012-00371

PATIENT
  Sex: Female
  Weight: 90.249 kg

DRUGS (2)
  1. METOPROLOL SUCCINATE [Suspect]
     Indication: ATRIAL FIBRILLATION
     Dosage: 1 TAB DAILY
     Route: 048
     Dates: start: 20110901
  2. DILTIAZEM [Suspect]
     Indication: ATRIAL FIBRILLATION
     Dosage: UNK
     Route: 042

REACTIONS (2)
  - DRUG INTERACTION [None]
  - CARDIAC ARREST [None]
